FAERS Safety Report 25112330 (Version 3)
Quarter: 2025Q2

REPORT INFORMATION
  Report Type: Report from Study
  Country: CA (occurrence: CA)
  Receive Date: 20250324
  Receipt Date: 20250509
  Transmission Date: 20250716
  Serious: Yes (Death, Hospitalization, Other)
  Sender: PFIZER
  Company Number: CA-PFIZER INC-202500061809

PATIENT
  Age: 78 Year
  Sex: Male

DRUGS (2)
  1. HYRIMOZ [Suspect]
     Active Substance: ADALIMUMAB-ADAZ
     Indication: Psoriasis
     Route: 065
  2. SIMLANDI [Suspect]
     Active Substance: ADALIMUMAB-RYVK
     Indication: Psoriasis
     Dosage: 40 MG, WEEKLY (FOR 3 WEEKS)
     Route: 058
     Dates: start: 20240209

REACTIONS (6)
  - Death [Fatal]
  - Complication associated with device [Fatal]
  - Overdose [Fatal]
  - Inappropriate schedule of product administration [Fatal]
  - Product storage error [Fatal]
  - Surgery [Fatal]
